FAERS Safety Report 5254070-1 (Version None)
Quarter: 2007Q1

REPORT INFORMATION
  Report Type: 
  Country: None (occurrence: None)
  Receive Date: 20070302
  Receipt Date: 20070215
  Transmission Date: 20070707
  Serious: Yes (Other)
  Sender: FDA-Public Use
  Company Number: NL-JNJFOC-20070300087

PATIENT
  Age: 89 Year
  Sex: Male

DRUGS (10)
  1. REMINYL [Suspect]
     Route: 065
  2. REMINYL [Suspect]
     Route: 065
  3. REMINYL [Suspect]
     Indication: DRUG USE FOR UNKNOWN INDICATION
     Route: 065
  4. TIMOLOL MALEATE [Concomitant]
  5. FUROSEMIDE [Concomitant]
  6. PROSCAR [Concomitant]
  7. XALATAN [Concomitant]
  8. PENTAZOCINE HYDROCHLORIDE [Concomitant]
  9. CLOMIPRAMINE HYDROCHLORIDE [Concomitant]
  10. ASCAL [Concomitant]

REACTIONS (2)
  - EXTRASYSTOLES [None]
  - MEDICATION ERROR [None]
